FAERS Safety Report 5367221-5 (Version None)
Quarter: 2007Q2

REPORT INFORMATION
  Report Type: 
  Country: None (occurrence: None)
  Receive Date: 20070619
  Receipt Date: 20070619
  Transmission Date: 20071010
  Serious: No
  Sender: FDA-Public Use
  Company Number: None

PATIENT
  Sex: Male

DRUGS (2)
  1. WARFARIN SODIUM [Suspect]
     Indication: ATRIAL FIBRILLATION
     Dosage: 2.5MG AND 5MG ALTERNATE DAILY ORAL
     Route: 048
     Dates: start: 20070301
  2. WARFARIN SODIUM [Suspect]
     Indication: CORONARY ARTERIAL STENT INSERTION
     Dosage: 2.5MG AND 5MG ALTERNATE DAILY ORAL
     Route: 048
     Dates: start: 20070301

REACTIONS (2)
  - FEELING HOT [None]
  - SKIN BURNING SENSATION [None]
